FAERS Safety Report 6330865-8 (Version None)
Quarter: 2009Q3

REPORT INFORMATION
  Report Type: 
  Country: None (occurrence: None)
  Receive Date: 20090827
  Receipt Date: 20090807
  Transmission Date: 20100115
  Serious: Yes (Other)
  Sender: FDA-Public Use
  Company Number: NL-JNJFOC-20090807908

PATIENT
  Age: 49 Year
  Sex: Female

DRUGS (4)
  1. KETOCONAZOLE [Suspect]
     Indication: DRUG USE FOR UNKNOWN INDICATION
     Dosage: 20MG/G
     Route: 065
  2. ATORVASTATIN [Suspect]
     Indication: HYPERCHOLESTEROLAEMIA
     Route: 065
  3. ASPIRIN [Concomitant]
     Route: 065
  4. LOSARTAN [Concomitant]
     Route: 065

REACTIONS (1)
  - RHABDOMYOLYSIS [None]
